FAERS Safety Report 13176074 (Version 1)
Quarter: 2017Q1

REPORT INFORMATION
  Report Type: Spontaneous
  Country: US (occurrence: US)
  Receive Date: 20170201
  Receipt Date: 20170201
  Transmission Date: 20170428
  Serious: No
  Sender: FDA-Public Use
  Company Number: US-PERRIGO-16US017690

PATIENT
  Sex: Female
  Weight: 68.27 kg

DRUGS (9)
  1. IBUPROFEN. [Suspect]
     Active Substance: IBUPROFEN
     Indication: ARTHRITIS
     Dosage: 400 MG, QD, PRN
     Route: 048
     Dates: start: 201605, end: 20160629
  2. IBUPROFEN. [Suspect]
     Active Substance: IBUPROFEN
     Indication: PAIN
     Dosage: 800 MG, EVERY 8 HOURS
     Route: 048
     Dates: start: 1991, end: 1991
  3. IBUPROFEN. [Suspect]
     Active Substance: IBUPROFEN
     Indication: PIRIFORMIS SYNDROME
     Dosage: 800 MG, EVERY 8 HOURS
     Route: 048
  4. LISINOPRIL. [Concomitant]
     Active Substance: LISINOPRIL
     Indication: PROPHYLAXIS
     Dosage: UNK
     Route: 065
     Dates: start: 2010
  5. IBUPROFEN. [Suspect]
     Active Substance: IBUPROFEN
     Indication: EAR INFECTION
  6. MULTIVITAMINS, PLAIN [Concomitant]
     Active Substance: VITAMINS
     Indication: SUPPLEMENTATION THERAPY
     Dosage: UNK
     Route: 065
  7. LIPITOR [Concomitant]
     Active Substance: ATORVASTATIN CALCIUM
     Indication: BLOOD CHOLESTEROL INCREASED
     Dosage: UNK
     Route: 065
     Dates: start: 1998
  8. IBUPROFEN. [Suspect]
     Active Substance: IBUPROFEN
     Indication: SINUSITIS
  9. OCUVITE [Concomitant]
     Active Substance: VITAMINS
     Indication: SUPPLEMENTATION THERAPY
     Dosage: UNK
     Route: 065

REACTIONS (3)
  - Off label use [Recovered/Resolved]
  - Therapeutic response unexpected [Unknown]
  - Expired product administered [Recovered/Resolved]

NARRATIVE: CASE EVENT DATE: 1991
